FAERS Safety Report 5069689-0 (Version None)
Quarter: 2006Q3

REPORT INFORMATION
  Report Type: 
  Country: None (occurrence: None)
  Receive Date: 20060802
  Receipt Date: 20060802
  Transmission Date: 20061208
  Serious: No
  Sender: FDA-Public Use
  Company Number: None

PATIENT
  Sex: Female

DRUGS (1)
  1. CEPHALEXIN [Suspect]
     Indication: BACTERIAL INFECTION
     Dosage: 500MG   BID   PO
     Route: 048
     Dates: start: 20060728, end: 20060729

REACTIONS (2)
  - NAUSEA [None]
  - VOMITING [None]
